FAERS Safety Report 9894340 (Version 2)
Quarter: 2014Q1

REPORT INFORMATION
  Report Type: Spontaneous
  Country: US (occurrence: US)
  Receive Date: 20140213
  Receipt Date: 20140213
  Transmission Date: 20141002
  Serious: Yes (Other)
  Sender: FDA-Public Use
  Company Number: 2014SP000299

PATIENT
  Age: 65 Year
  Sex: Female
  Weight: 82 kg

DRUGS (5)
  1. BROVANA [Suspect]
     Indication: RESPIRATORY DISORDER
     Route: 055
     Dates: start: 2014
  2. BROVANA [Suspect]
     Indication: PNEUMONIA
     Route: 055
     Dates: start: 2014
  3. BROVANA [Suspect]
     Indication: BRONCHITIS
     Route: 055
     Dates: start: 2014
  4. VITAMIN C WITH ZINC [Suspect]
  5. BUDESONIDE [Suspect]

REACTIONS (5)
  - Pneumonia [Recovered/Resolved]
  - Feeling cold [Recovered/Resolved]
  - Insomnia [Recovered/Resolved]
  - Nausea [Recovered/Resolved]
  - Off label use [None]
